FAERS Safety Report 24175295 (Version 1)
Quarter: 2024Q3

REPORT INFORMATION
  Report Type: Spontaneous
  Country: US (occurrence: US)
  Receive Date: 20240805
  Receipt Date: 20240805
  Transmission Date: 20241017
  Serious: No
  Sender: PAREXEL
  Company Number: US-SCPHARMACEUTICALS-2024-SCPH-US000330

PATIENT

DRUGS (10)
  1. FUROSCIX [Suspect]
     Active Substance: FUROSEMIDE
     Indication: Cardiac failure
     Dosage: 80 MG
     Route: 058
  2. DULOXETINE [Concomitant]
     Active Substance: DULOXETINE
     Dosage: UNK
  3. ESTRADIOL [Concomitant]
     Active Substance: ESTRADIOL
  4. GABAPENTIN [Concomitant]
     Active Substance: GABAPENTIN
  5. LEVOTHYROXINE [Concomitant]
     Active Substance: LEVOTHYROXINE\LEVOTHYROXINE SODIUM
  6. LEXAPRO [Concomitant]
     Active Substance: ESCITALOPRAM OXALATE
  7. POTASSIUM CHLORIDE [Concomitant]
     Active Substance: POTASSIUM CHLORIDE
  8. ROPINIROLE [Concomitant]
     Active Substance: ROPINIROLE
  9. SOTALOL [Concomitant]
     Active Substance: SOTALOL
  10. TRAZODONE [Concomitant]
     Active Substance: TRAZODONE HYDROCHLORIDE

REACTIONS (3)
  - Infusion site pain [Unknown]
  - Infusion site bruising [Unknown]
  - Infusion site erythema [Unknown]
